FAERS Safety Report 8359067 (Version 2)
Quarter: 2013Q4

REPORT INFORMATION
  Report Type: Spontaneous
  Country: FR (occurrence: FR)
  Receive Date: 20120127
  Receipt Date: 20131231
  Transmission Date: 20140711
  Serious: Yes (Other)
  Sender: FDA-Public Use
  Company Number: FR-PFIZER INC-2012018025

PATIENT
  Age: 67 Year
  Sex: Male

DRUGS (7)
  1. CAMPTO [Suspect]
     Indication: COLON CANCER
     Dosage: 360 MG
     Route: 041
     Dates: start: 201111, end: 201201
  2. FLUOROURACILE PFIZER [Suspect]
     Indication: COLON CANCER
     Dosage: 800 MG
     Route: 042
     Dates: start: 201111, end: 201201
  3. FLUOROURACILE PFIZER [Suspect]
     Dosage: 4800 MG
     Route: 041
     Dates: start: 201111, end: 201201
  4. ATROPINE SULFATE [Suspect]
     Indication: PREMEDICATION
     Dosage: 1 DF, 1X/DAY
     Route: 058
     Dates: start: 201111, end: 201201
  5. ZOPHREN [Suspect]
     Indication: PREMEDICATION
     Dosage: 1 DF, 1X/DAY
     Route: 042
     Dates: start: 201111, end: 201201
  6. CALCIUM LEVOFOLINATE [Suspect]
     Indication: COLON CANCER
     Dosage: 400 MG
     Route: 041
     Dates: start: 201111, end: 201201
  7. METHYLPREDNISOLONE [Suspect]
     Indication: PREMEDICATION
     Dosage: 60 MG
     Route: 042
     Dates: start: 201111, end: 201201

REACTIONS (1)
  - Urticaria [Recovered/Resolved]
